FAERS Safety Report 12472319 (Version 1)
Quarter: 2016Q2

REPORT INFORMATION
  Report Type: Spontaneous
  Country: US (occurrence: US)
  Receive Date: 20160616
  Receipt Date: 20160616
  Transmission Date: 20160815
  Serious: No
  Sender: FDA-Public Use
  Company Number: US-ACTELION-A-NJ2016-137326

PATIENT
  Age: 63 Year
  Sex: Male

DRUGS (6)
  1. ALFUZOSIN [Concomitant]
     Active Substance: ALFUZOSIN
  2. VALCHLOR [Suspect]
     Active Substance: MECHLORETHAMINE
     Indication: MYCOSIS FUNGOIDES
     Dosage: UNK, QD
     Route: 061
     Dates: start: 20160404
  3. LISINOPRIL. [Concomitant]
     Active Substance: LISINOPRIL
  4. MIRTAZAPINE. [Concomitant]
     Active Substance: MIRTAZAPINE
  5. LEXAPRO [Concomitant]
     Active Substance: ESCITALOPRAM OXALATE
  6. METOPROLOL. [Concomitant]
     Active Substance: METOPROLOL

REACTIONS (3)
  - Application site pain [Unknown]
  - Application site irritation [Unknown]
  - Application site discolouration [Unknown]
